FAERS Safety Report 19064832 (Version 1)
Quarter: 2021Q1

REPORT INFORMATION
  Report Type: Spontaneous
  Country: SE (occurrence: SE)
  Receive Date: 20210326
  Receipt Date: 20210326
  Transmission Date: 20210420
  Serious: Yes (Hospitalization, Other)
  Sender: FDA-Public Use
  Company Number: SE-TAKEDA-2021TUS017604

PATIENT
  Age: 31 Year
  Sex: Female

DRUGS (7)
  1. ELVANSE [Suspect]
     Active Substance: LISDEXAMFETAMINE DIMESYLATE
     Indication: ATTENTION DEFICIT HYPERACTIVITY DISORDER
     Dosage: STYRKA 20+30 MG ?DOS?KNING 6?7/2 TILL 50 MG P? MORGONEN
     Route: 048
     Dates: start: 20210127, end: 20210210
  2. ALVESCO [Concomitant]
     Active Substance: CICLESONIDE
  3. MONTELUKAST [Concomitant]
     Active Substance: MONTELUKAST SODIUM
  4. PREDNISOLONE. [Concomitant]
     Active Substance: PREDNISOLONE
     Dates: start: 20210205
  5. DESLORATADINE. [Concomitant]
     Active Substance: DESLORATADINE
  6. INNOVAIR [Concomitant]
     Active Substance: BECLOMETHASONE DIPROPIONATE\FORMOTEROL
  7. AMITRIPTYLINE [Concomitant]
     Active Substance: AMITRIPTYLINE
     Dosage: 20 MILLIGRAM
     Dates: start: 2017

REACTIONS (5)
  - Orthostatic hypotension [Not Recovered/Not Resolved]
  - Speech disorder [Not Recovered/Not Resolved]
  - Syncope [Not Recovered/Not Resolved]
  - Headache [Not Recovered/Not Resolved]
  - Gait disturbance [Not Recovered/Not Resolved]

NARRATIVE: CASE EVENT DATE: 20210129
